FAERS Safety Report 10217087 (Version 1)
Quarter: 2014Q2

REPORT INFORMATION
  Report Type: Spontaneous
  Country: US (occurrence: US)
  Receive Date: 20140604
  Receipt Date: 20140604
  Transmission Date: 20141212
  Serious: Yes (Hospitalization)
  Sender: FDA-Public Use
  Company Number: US-GILEAD-2014-0103746

PATIENT
  Sex: 0

DRUGS (2)
  1. SOVALDI [Suspect]
     Indication: HEPATITIS C
     Dosage: 400 MG, UNK
     Route: 065
     Dates: start: 2014
  2. SIMEPREVIR [Concomitant]
     Dosage: UNK
     Dates: start: 2014

REACTIONS (1)
  - Colitis [Unknown]
